FAERS Safety Report 22294418 (Version 1)
Quarter: 2023Q2

REPORT INFORMATION
  Report Type: Spontaneous
  Country: SE (occurrence: SE)
  Receive Date: 20230508
  Receipt Date: 20230508
  Transmission Date: 20230721
  Serious: Yes (Other)
  Sender: FDA-Public Use
  Company Number: SE-BAYER-2023A043791

PATIENT
  Sex: Male

DRUGS (2)
  1. XOFIGO [Suspect]
     Active Substance: RADIUM RA-223 DICHLORIDE
     Indication: Prostate cancer
     Dosage: UNK
  2. XOFIGO [Suspect]
     Active Substance: RADIUM RA-223 DICHLORIDE
     Indication: Prostate cancer
     Dosage: UNK

REACTIONS (6)
  - Prostate cancer metastatic [Not Recovered/Not Resolved]
  - Neutropenia [None]
  - Pancytopenia [Not Recovered/Not Resolved]
  - Haemoglobin decreased [None]
  - Bone marrow disorder [None]
  - Fatigue [None]
